FAERS Safety Report 18507100 (Version 1)
Quarter: 2020Q4

REPORT INFORMATION
  Report Type: Spontaneous
  Country: US (occurrence: US)
  Receive Date: 20201116
  Receipt Date: 20201116
  Transmission Date: 20210114
  Serious: No
  Sender: FDA-Public Use
  Company Number: US-TAKEDA-2020TUS045273

PATIENT
  Sex: Female

DRUGS (1)
  1. CUVITRU [Suspect]
     Active Substance: HUMAN IMMUNOGLOBULIN G
     Indication: IMMUNODEFICIENCY COMMON VARIABLE
     Dosage: 16 MILLIGRAM
     Route: 065

REACTIONS (4)
  - Teething [Unknown]
  - Sinus disorder [Not Recovered/Not Resolved]
  - Gingivitis [Unknown]
  - Bone loss [Not Recovered/Not Resolved]
